FAERS Safety Report 18453696 (Version 2)
Quarter: 2020Q4

REPORT INFORMATION
  Report Type: Spontaneous
  Country: US (occurrence: US)
  Receive Date: 20201102
  Receipt Date: 20201202
  Transmission Date: 20210114
  Serious: Yes (Other)
  Sender: FDA-Public Use
  Company Number: US-VERTEX PHARMACEUTICALS-2020-021230

PATIENT
  Age: 26 Year
  Sex: Male

DRUGS (25)
  1. COLISTIN [Concomitant]
     Active Substance: COLISTIN
     Dosage: 150 MILLIGRAM, BID
  2. CYPROHEPTADINE. [Concomitant]
     Active Substance: CYPROHEPTADINE
     Dosage: 8 MILLIGRAM, TID
     Route: 048
  3. LORATADINE. [Concomitant]
     Active Substance: LORATADINE
     Dosage: 10 MILLIGRAM, DAILY
     Route: 048
  4. VITAMIN A [RETINOL] [Concomitant]
     Active Substance: RETINOL
     Dosage: 10,000 UNITS, DAILY
     Route: 048
  5. POLYMYXIN B. [Concomitant]
     Active Substance: POLYMYXIN B
     Dosage: UNK
     Dates: end: 202010
  6. ESCITALOPRAM [Concomitant]
     Active Substance: ESCITALOPRAM OXALATE
     Dosage: 20 MILLIGRAM, DAILY
     Route: 048
  7. INSULIN GLARGINE [Concomitant]
     Active Substance: INSULIN GLARGINE
     Dosage: 8 UNITS, Q24H
     Route: 058
  8. FORMOTEROL FUMARATE;MOMETASONE FUROATE [Concomitant]
     Active Substance: FORMOTEROL FUMARATE\MOMETASONE FUROATE
     Dosage: 2 PUFFS
  9. PANTOPRAZOLE [Concomitant]
     Active Substance: PANTOPRAZOLE
     Dosage: 40 MILLIGRAM, DAILY
     Route: 048
  10. RISPERIDONE. [Concomitant]
     Active Substance: RISPERIDONE
     Dosage: 1 MILLIGRAM, BID
     Route: 048
  11. VITAMIN D3 [Concomitant]
     Active Substance: CHOLECALCIFEROL
     Dosage: 4000 UNITS, DAILY
     Route: 048
  12. PANCRELIPASE. [Concomitant]
     Active Substance: PANCRELIPASE
     Dosage: 160,000 UNITS, W/MEALS
     Route: 048
  13. ZOSYN [Concomitant]
     Active Substance: PIPERACILLIN SODIUM\TAZOBACTAM SODIUM
     Dosage: 4.5 GRAM, Q6H
     Route: 042
  14. ALBUTEROL [SALBUTAMOL] [Concomitant]
     Active Substance: ALBUTEROL
     Dosage: 2.5 MILLIGRAM, 4 TIMES DAILY
  15. ENOXAPARIN [Concomitant]
     Active Substance: ENOXAPARIN
     Dosage: 40 MILLIGRAM, QAM
     Route: 058
  16. SODIUM CHLORIDE. [Concomitant]
     Active Substance: SODIUM CHLORIDE
     Dosage: 4 MILLILITER, BID
  17. DORNASE ALFA. [Concomitant]
     Active Substance: DORNASE ALFA
     Dosage: 2.5 MILLIGRAM, BID
  18. INSULIN LISPRO [Concomitant]
     Active Substance: INSULIN LISPRO
     Dosage: 4 X DAILY W/MEALS, HS
     Route: 058
  19. NYSTATIN. [Concomitant]
     Active Substance: NYSTATIN
     Dosage: 1 APPLICATION,  BID
     Route: 061
  20. TESTOSTERONE CYPIONATE. [Concomitant]
     Active Substance: TESTOSTERONE CYPIONATE
     Dosage: 100 MILLIGRAM, WEEKLY
     Route: 030
  21. TRIKAFTA [Suspect]
     Active Substance: ELEXACAFTOR\IVACAFTOR\TEZACAFTOR
     Indication: CYSTIC FIBROSIS
     Dosage: 2 TABLETS (100 MG ELEXACAFTOR/ 50 MG TEZACAFTOR/ 75 MG IVACAFTOR) AM; 1 TABLET (150MG IVACAFTOR) PM
     Route: 048
     Dates: start: 20201015, end: 2020
  22. FLUTICASONE. [Concomitant]
     Active Substance: FLUTICASONE
     Dosage: 2 SPRAY, DAILY
     Route: 045
  23. MONTELUKAST [Concomitant]
     Active Substance: MONTELUKAST SODIUM
     Dosage: 10 MILLIGRAM, DAILY
     Route: 048
  24. URSODIOL. [Concomitant]
     Active Substance: URSODIOL
     Dosage: 300 MILLIGRAM, BID
     Route: 048
  25. CLINDAMYCIN. [Concomitant]
     Active Substance: CLINDAMYCIN
     Dosage: UNK
     Dates: end: 202010

REACTIONS (2)
  - Pneumonia [Recovered/Resolved]
  - Acute respiratory failure [Recovered/Resolved]

NARRATIVE: CASE EVENT DATE: 202010
